FAERS Safety Report 16626901 (Version 1)
Quarter: 2019Q3

REPORT INFORMATION
  Report Type: Spontaneous
  Country: US (occurrence: US)
  Receive Date: 20190724
  Receipt Date: 20190724
  Transmission Date: 20191004
  Serious: No
  Sender: FDA-Public Use
  Company Number: US-SA-2019SA195712

PATIENT
  Sex: Male

DRUGS (1)
  1. PRALUENT [Suspect]
     Active Substance: ALIROCUMAB
     Indication: UNEVALUABLE EVENT
     Dosage: 75 MG/ML, QOW
     Route: 058

REACTIONS (2)
  - Influenza like illness [Recovered/Resolved]
  - Amnesia [Recovered/Resolved]
